FAERS Safety Report 18418521 (Version 3)
Quarter: 2020Q4

REPORT INFORMATION
  Report Type: Spontaneous
  Country: US (occurrence: US)
  Receive Date: 20201023
  Receipt Date: 20201030
  Transmission Date: 20210114
  Serious: No
  Sender: FDA-Public Use
  Company Number: US-AMGEN-USASP2020169765

PATIENT
  Sex: Female

DRUGS (1)
  1. PROLIA [Suspect]
     Active Substance: DENOSUMAB
     Indication: OSTEOPOROSIS POSTMENOPAUSAL
     Dosage: UNK
     Route: 065
     Dates: start: 201603

REACTIONS (6)
  - Toothache [Not Recovered/Not Resolved]
  - Pain in jaw [Unknown]
  - Secretion discharge [Unknown]
  - Product dose omission issue [Unknown]
  - Dental caries [Unknown]
  - Dyspnoea [Unknown]
